FAERS Safety Report 24090879 (Version 1)
Quarter: 2024Q3

REPORT INFORMATION
  Report Type: Spontaneous
  Country: GB (occurrence: GB)
  Receive Date: 20240715
  Receipt Date: 20240715
  Transmission Date: 20241016
  Serious: Yes (Other)
  Sender: INSUD PHARMA
  Company Number: None

PATIENT
  Sex: Female

DRUGS (3)
  1. PROGESTERONE [Suspect]
     Active Substance: PROGESTERONE
     Indication: Menopause
     Dosage: AT NIGHT
     Dates: start: 20240416, end: 20240430
  2. ESTRADIOL [Concomitant]
     Active Substance: ESTRADIOL
     Indication: Menopause
     Dates: start: 20230101
  3. VITAMIN B12 [Concomitant]
     Active Substance: CYANOCOBALAMIN
     Indication: Menopause
     Dates: start: 20230101, end: 20240423

REACTIONS (9)
  - Diplopia [Not Recovered/Not Resolved]
  - Insomnia [Not Recovered/Not Resolved]
  - Vaginal haemorrhage [Not Recovered/Not Resolved]
  - Dizziness [Unknown]
  - Abdominal distension [Recovered/Resolved]
  - Hot flush [Unknown]
  - Paraesthesia [Recovered/Resolved]
  - Weight increased [Recovered/Resolved]
  - Product substitution issue [Unknown]

NARRATIVE: CASE EVENT DATE: 20240401
